FAERS Safety Report 6936134-7 (Version None)
Quarter: 2010Q3

REPORT INFORMATION
  Report Type: 
  Country: None (occurrence: None)
  Receive Date: 20100819
  Receipt Date: 20100819
  Transmission Date: 20110219
  Serious: Yes (Other)
  Sender: FDA-Public Use
  Company Number: None

PATIENT
  Age: 50 Year
  Sex: Female
  Weight: 65.7716 kg

DRUGS (1)
  1. LITHOBID [Suspect]
     Indication: OSTEOARTHRITIS
     Dosage: 900 MG DAILY PO
     Route: 048

REACTIONS (2)
  - RENAL CYST [None]
  - RENAL IMPAIRMENT [None]
